FAERS Safety Report 14309746 (Version 34)
Quarter: 2019Q1

REPORT INFORMATION
  Report Type: Spontaneous
  Country: CA (occurrence: CA)
  Receive Date: 20171220
  Receipt Date: 20190327
  Transmission Date: 20190417
  Serious: Yes (Other)
  Sender: FDA-Public Use
  Company Number: CA-CELLTRION INC.-2017CA009441

PATIENT

DRUGS (23)
  1. INFLECTRA [Suspect]
     Active Substance: INFLIXIMAB-DYYB
     Dosage: 310 MG, (EVERY 4 WEEKS)
     Route: 042
     Dates: start: 20181221
  2. INFLECTRA [Suspect]
     Active Substance: INFLIXIMAB-DYYB
     Dosage: 310 MG, (EVERY 4 WEEKS)
     Route: 042
     Dates: start: 20180629
  3. INFLECTRA [Suspect]
     Active Substance: INFLIXIMAB-DYYB
     Dosage: 310 MG, (EVERY 4 WEEKS)
     Route: 042
     Dates: start: 20180828
  4. INFLECTRA [Suspect]
     Active Substance: INFLIXIMAB-DYYB
     Dosage: 309 MG, (ON 0, 2, 6 WEEKS, THEN EVERY 8 WEEKS)
     Route: 042
     Dates: start: 20171013, end: 2017
  5. INFLECTRA [Suspect]
     Active Substance: INFLIXIMAB-DYYB
     Dosage: 310 MG (EVERY 4 WEEKS)
     Route: 042
     Dates: start: 20180202
  6. INFLECTRA [Suspect]
     Active Substance: INFLIXIMAB-DYYB
     Dosage: 310 MG, (EVERY 4 WEEKS)
     Route: 042
     Dates: start: 20190117
  7. INFLECTRA [Suspect]
     Active Substance: INFLIXIMAB-DYYB
     Dosage: 310 MG, (EVERY 4 WEEKS)
     Route: 042
     Dates: start: 20180726
  8. INFLECTRA [Suspect]
     Active Substance: INFLIXIMAB-DYYB
     Dosage: 310 MG, (EVERY 4 WEEKS)
     Route: 042
     Dates: start: 20181126
  9. INFLECTRA [Suspect]
     Active Substance: INFLIXIMAB-DYYB
     Dosage: 310 MG, (EVERY 4 WEEKS)
     Route: 042
     Dates: start: 20190215
  10. BISOPROLOL [Concomitant]
     Active Substance: BISOPROLOL
     Dosage: UNK
  11. INFLECTRA [Suspect]
     Active Substance: INFLIXIMAB-DYYB
     Indication: CROHN^S DISEASE
     Dosage: 309 MG, (ON 0, 2, 6 WEEKS, THEN EVERY 8 WEEKS)
     Route: 042
     Dates: start: 20170707, end: 20171208
  12. INFLECTRA [Suspect]
     Active Substance: INFLIXIMAB-DYYB
     Dosage: 309 MG, (ON 0, 2, 6 WEEKS, THEN EVERY 8 WEEKS)
     Route: 042
     Dates: start: 20171208, end: 20171208
  13. INFLECTRA [Suspect]
     Active Substance: INFLIXIMAB-DYYB
     Dosage: 310 MG, (EVERY 4 WEEKS)
     Route: 042
     Dates: start: 20180507
  14. INFLECTRA [Suspect]
     Active Substance: INFLIXIMAB-DYYB
     Dosage: 310 MG, (EVERY 4 WEEKS)
     Route: 042
     Dates: start: 20180921
  15. INFLECTRA [Suspect]
     Active Substance: INFLIXIMAB-DYYB
     Dosage: 310 MG, (EVERY 4 WEEKS)
     Route: 042
     Dates: start: 20181221
  16. INFLECTRA [Suspect]
     Active Substance: INFLIXIMAB-DYYB
     Dosage: 310 MG, (EVERY 4 WEEKS)
     Route: 042
     Dates: start: 20190315
  17. INFLECTRA [Suspect]
     Active Substance: INFLIXIMAB-DYYB
     Dosage: 310 MG, (EVERY 4 WEEKS)
     Route: 042
     Dates: start: 20180308
  18. MEZAVANT [Concomitant]
     Active Substance: MESALAMINE
     Dosage: UNK
     Dates: start: 2016
  19. MOMETASONE FUROATE. [Concomitant]
     Active Substance: MOMETASONE FUROATE
     Dosage: UNK
  20. INFLECTRA [Suspect]
     Active Substance: INFLIXIMAB-DYYB
     Dosage: 310 MG, (EVERY 4 WEEKS)
     Route: 042
     Dates: start: 20180406
  21. INFLECTRA [Suspect]
     Active Substance: INFLIXIMAB-DYYB
     Dosage: 310 MG, (EVERY 4 WEEKS)
     Route: 042
     Dates: start: 20180601
  22. INFLECTRA [Suspect]
     Active Substance: INFLIXIMAB-DYYB
     Dosage: 310 MG, (EVERY 4 WEEKS)
     Route: 042
     Dates: start: 20181018
  23. PREDNISONE. [Concomitant]
     Active Substance: PREDNISONE
     Dosage: UNK
     Dates: start: 201705

REACTIONS (72)
  - Fatigue [Unknown]
  - Drug specific antibody present [Unknown]
  - Urticaria [Recovered/Resolved]
  - Viral infection [Not Recovered/Not Resolved]
  - Cough [Not Recovered/Not Resolved]
  - Burning sensation [Unknown]
  - Erythema [Recovered/Resolved]
  - Dry throat [Recovered/Resolved]
  - Abnormal faeces [Unknown]
  - Stress [Not Recovered/Not Resolved]
  - White blood cells urine [Unknown]
  - Blood urine present [Unknown]
  - Haemorrhoids [Unknown]
  - Nausea [Unknown]
  - Hypersensitivity [Not Recovered/Not Resolved]
  - Aphthous ulcer [Unknown]
  - Asthenia [Unknown]
  - Headache [Recovered/Resolved]
  - Muscle strain [Unknown]
  - Feeling abnormal [Unknown]
  - Ear pain [Recovered/Resolved]
  - Oral herpes [Unknown]
  - Pain in extremity [Unknown]
  - Rash [Unknown]
  - Pelvic inflammatory disease [Unknown]
  - Inflammation [Unknown]
  - Nasopharyngitis [Not Recovered/Not Resolved]
  - Oropharyngeal pain [Recovered/Resolved]
  - Erythema nodosum [Not Recovered/Not Resolved]
  - Ear infection viral [Not Recovered/Not Resolved]
  - Paraesthesia oral [Unknown]
  - Oral mucosal erythema [Unknown]
  - Dry skin [Unknown]
  - Ear discomfort [Recovered/Resolved]
  - Uveitis [Unknown]
  - Pelvic pain [Unknown]
  - Mucous stools [Not Recovered/Not Resolved]
  - Pollakiuria [Not Recovered/Not Resolved]
  - Dysuria [Unknown]
  - Contusion [Recovered/Resolved]
  - Urinary tract infection [Not Recovered/Not Resolved]
  - Pain [Unknown]
  - Abdominal pain upper [Unknown]
  - Condition aggravated [Not Recovered/Not Resolved]
  - Blood pressure fluctuation [Unknown]
  - Animal scratch [Recovering/Resolving]
  - Malaise [Recovered/Resolved]
  - Back pain [Not Recovered/Not Resolved]
  - Paraesthesia [Unknown]
  - Hand-foot-and-mouth disease [Unknown]
  - Cystitis [Recovered/Resolved]
  - Gastrointestinal motility disorder [Not Recovered/Not Resolved]
  - Irritable bowel syndrome [Unknown]
  - Urine odour abnormal [Unknown]
  - Rhinorrhoea [Not Recovered/Not Resolved]
  - Vein collapse [Recovered/Resolved]
  - Bronchitis [Unknown]
  - Skin disorder [Unknown]
  - Musculoskeletal stiffness [Not Recovered/Not Resolved]
  - Lower respiratory tract infection [Unknown]
  - Drug level below therapeutic [Unknown]
  - Micturition urgency [Recovering/Resolving]
  - Middle ear effusion [Unknown]
  - Throat irritation [Unknown]
  - Product use issue [Unknown]
  - Dizziness [Unknown]
  - Product dispensing error [Unknown]
  - Arthralgia [Not Recovered/Not Resolved]
  - Abdominal discomfort [Recovered/Resolved]
  - Sensitive skin [Recovered/Resolved]
  - Anxiety [Not Recovered/Not Resolved]
  - Myalgia [Unknown]

NARRATIVE: CASE EVENT DATE: 2017
